FAERS Safety Report 7999016-8 (Version None)
Quarter: 2011Q4

REPORT INFORMATION
  Report Type: 
  Country: None (occurrence: None)
  Receive Date: 20111221
  Receipt Date: 20111214
  Transmission Date: 20120403
  Serious: Yes (Other)
  Sender: FDA-Public Use
  Company Number: US-ROCHE-792180

PATIENT
  Sex: Male
  Weight: 65.83 kg

DRUGS (6)
  1. ACCUTANE [Suspect]
  2. ACCUTANE [Suspect]
     Indication: ACNE
     Route: 048
     Dates: start: 20040101, end: 20050101
  3. ACETAMINOPHEN [Concomitant]
  4. ACCUTANE [Suspect]
  5. BENADRYL [Concomitant]
  6. PSEUDOEPHEDRINE HCL [Concomitant]

REACTIONS (7)
  - COLITIS ULCERATIVE [None]
  - DEPRESSION [None]
  - IRRITABLE BOWEL SYNDROME [None]
  - DRY SKIN [None]
  - INFLAMMATORY BOWEL DISEASE [None]
  - SUICIDAL IDEATION [None]
  - ANAL STENOSIS [None]
